FAERS Safety Report 9200572 (Version 1)
Quarter: 2013Q1

REPORT INFORMATION
  Report Type: Spontaneous
  Country: US (occurrence: US)
  Receive Date: 20130329
  Receipt Date: 20130329
  Transmission Date: 20140127
  Serious: No
  Sender: FDA-Public Use
  Company Number: US-PFIZER INC-2013099636

PATIENT
  Sex: Female

DRUGS (2)
  1. PRISTIQ [Suspect]
     Dosage: UNK
     Dates: start: 201303
  2. XANAX [Suspect]
     Dosage: ONE TABLET THREE TIMES DAILY
     Dates: start: 201303

REACTIONS (4)
  - Drug ineffective [Unknown]
  - Feeling jittery [Unknown]
  - Anxiety [Unknown]
  - Nervousness [Unknown]
